FAERS Safety Report 15680250 (Version 1)
Quarter: 2018Q4

REPORT INFORMATION
  Report Type: Spontaneous
  Country: US (occurrence: US)
  Receive Date: 20181120
  Receipt Date: 20181120
  Transmission Date: 20190205
  Serious: Yes (Hospitalization, Other)
  Sender: FDA-Public Use
  Company Number: None

PATIENT
  Age: 57 Year
  Sex: Male

DRUGS (1)
  1. ENALAPRIL [Suspect]
     Active Substance: ENALAPRIL
     Indication: HYPERTENSION
     Route: 048
     Dates: start: 20100818, end: 20180906

REACTIONS (7)
  - Lip pain [None]
  - Product dose omission [None]
  - Extra dose administered [None]
  - Swelling [None]
  - Middle insomnia [None]
  - Angioedema [None]
  - Nausea [None]

NARRATIVE: CASE EVENT DATE: 20180905
